FAERS Safety Report 10717567 (Version 1)
Quarter: 2015Q1

REPORT INFORMATION
  Report Type: Report from Study
  Country: JP (occurrence: JP)
  Receive Date: 20150116
  Receipt Date: 20150116
  Transmission Date: 20150721
  Serious: Yes (Other)
  Sender: FDA-Public Use
  Company Number: JP-CELGENE-JPN-2015012215

PATIENT
  Age: 80 Year
  Sex: Male

DRUGS (1)
  1. VIDAZA [Suspect]
     Active Substance: AZACITIDINE
     Indication: PRODUCT USED FOR UNKNOWN INDICATION
     Dosage: 75 MILLIGRAM/SQ. METER
     Route: 065
     Dates: start: 20120828, end: 20140803

REACTIONS (13)
  - Blood urea increased [Recovering/Resolving]
  - Bronchopneumonia [Recovered/Resolved]
  - Pruritus [Recovering/Resolving]
  - White blood cell count decreased [Recovered/Resolved]
  - Red blood cell count decreased [Not Recovered/Not Resolved]
  - Blood creatinine increased [Recovering/Resolving]
  - Blast cell count increased [Recovering/Resolving]
  - White blood cell count increased [Not Recovered/Not Resolved]
  - Bronchopneumonia [Recovered/Resolved]
  - Blast cell count increased [Not Recovered/Not Resolved]
  - Respiratory failure [Recovered/Resolved]
  - Haemoglobin decreased [Not Recovered/Not Resolved]
  - Platelet count decreased [Not Recovered/Not Resolved]

NARRATIVE: CASE EVENT DATE: 20120901
